FAERS Safety Report 24076035 (Version 1)
Quarter: 2024Q3

REPORT INFORMATION
  Report Type: Report from Study
  Country: CA (occurrence: CA)
  Receive Date: 20240710
  Receipt Date: 20240710
  Transmission Date: 20241017
  Serious: Yes (Other)
  Sender: NOVARTIS
  Company Number: CA-002147023-NVSC2024CA140743

PATIENT
  Age: 73 Year
  Sex: Female

DRUGS (2)
  1. KISQALI [Suspect]
     Active Substance: RIBOCICLIB
     Indication: Breast cancer metastatic
     Dosage: 600 MG
     Route: 048
     Dates: start: 20240604
  2. KISQALI [Suspect]
     Active Substance: RIBOCICLIB
     Dosage: 2ND CYCLE OF  KISQALI
     Route: 065
     Dates: start: 20240702

REACTIONS (6)
  - Choking [Unknown]
  - Diarrhoea [Unknown]
  - White blood cell count decreased [Unknown]
  - Vomiting [Unknown]
  - Abdominal pain upper [Unknown]
  - Mass [Unknown]
